FAERS Safety Report 8314659-X (Version None)
Quarter: 2012Q2

REPORT INFORMATION
  Report Type: 
  Country: None (occurrence: None)
  Receive Date: 20120426
  Receipt Date: 20120419
  Transmission Date: 20120825
  Serious: Yes (Life-Threatening, Hospitalization)
  Sender: FDA-Public Use
  Company Number: BR-ROCHE-696641

PATIENT
  Sex: Male
  Weight: 82 kg

DRUGS (76)
  1. AVASTIN [Suspect]
     Indication: RENAL CELL CARCINOMA
     Dosage: FREQUENCY REPORTED EVERY OTHER WEEK
     Route: 042
     Dates: start: 20091216, end: 20100324
  2. GLYBURIDE [Concomitant]
     Dates: start: 20100407, end: 20100408
  3. GLYBURIDE [Concomitant]
     Dates: start: 20100427, end: 20100427
  4. GLYBURIDE [Concomitant]
     Dates: start: 20100510
  5. PAROXETINE [Concomitant]
     Dates: start: 20100502, end: 20100502
  6. BETAHISTINE [Concomitant]
     Dates: start: 20100510
  7. LEVOTHYROXINE SODIUM [Concomitant]
     Dates: start: 20100407, end: 20100408
  8. OMEPRAZOLE [Concomitant]
     Dates: start: 20100430, end: 20100509
  9. DRAMIN [Concomitant]
     Indication: PROPHYLAXIS OF NAUSEA AND VOMITING
     Dates: start: 20100202, end: 20100403
  10. DRAMIN [Concomitant]
     Dates: start: 20100414, end: 20100424
  11. ATROVENT [Concomitant]
     Indication: PROPHYLAXIS
     Dates: start: 20100428, end: 20100428
  12. METOCLOPRAMIDE [Concomitant]
     Dates: start: 20100504, end: 20100505
  13. BROMOPRIDE [Concomitant]
     Indication: PROPHYLAXIS
     Dates: start: 20100430, end: 20100506
  14. HALOPERIDOL [Concomitant]
     Indication: PROPHYLAXIS
     Dates: start: 20100503, end: 20100503
  15. ONDANSETRON [Concomitant]
     Dates: start: 20100407, end: 20100408
  16. HEPARIN [Concomitant]
     Indication: THROMBOSIS PROPHYLAXIS
     Dates: start: 20100412, end: 20100412
  17. OMEPRAZOLE [Concomitant]
     Indication: DYSPEPSIA
     Dates: start: 20100411, end: 20100412
  18. HEPARIN [Concomitant]
     Dates: start: 20100425, end: 20100425
  19. DIPYRONE TAB [Concomitant]
     Dates: start: 20100501, end: 20100502
  20. GLICERINA [Concomitant]
     Indication: PROPHYLAXIS
     Dates: start: 20100502, end: 20100504
  21. GLYBURIDE [Concomitant]
     Indication: DIABETES MELLITUS
     Dates: start: 20100128, end: 20100403
  22. GLYBURIDE [Concomitant]
     Dates: start: 20100502, end: 20100503
  23. PAROXETINE [Concomitant]
     Indication: DEPRESSION
     Dates: start: 20091230, end: 20100405
  24. PAROXETINE [Concomitant]
     Dates: start: 20100414, end: 20100424
  25. LEVOTHYROXINE SODIUM [Concomitant]
     Indication: HYPOTHYROIDISM
     Dates: start: 20060101, end: 20100404
  26. LEVOTHYROXINE SODIUM [Concomitant]
     Dates: start: 20100429, end: 20100429
  27. HEPARIN [Concomitant]
     Dates: start: 20100430, end: 20100509
  28. METOCLOPRAMIDE [Concomitant]
     Dates: start: 20100422, end: 20100422
  29. DIPYRONE TAB [Concomitant]
     Dates: start: 20100425, end: 20100429
  30. DIPYRONE TAB [Concomitant]
     Dates: start: 20100504, end: 20100504
  31. CLOBUTINOL [Concomitant]
     Indication: PAIN PROPHYLAXIS
     Dates: start: 20100428, end: 20100428
  32. FENOTEROL [Concomitant]
     Indication: PROPHYLAXIS
     Dates: start: 20100501, end: 20100509
  33. PAROXETINE [Concomitant]
     Dates: start: 20100509
  34. ONDANSETRON [Concomitant]
     Dates: start: 20100414, end: 20100424
  35. ONDANSETRON [Concomitant]
     Dates: start: 20100501, end: 20100504
  36. DOMPERIDONE [Concomitant]
     Indication: PROPHYLAXIS OF NAUSEA AND VOMITING
     Dates: start: 20100324, end: 20100406
  37. DOMPERIDONE [Concomitant]
     Dates: start: 20100414, end: 20100424
  38. LEVOTHYROXINE SODIUM [Concomitant]
     Dates: start: 20100414, end: 20100424
  39. BROMAZEPAM [Concomitant]
     Dates: start: 20100414
  40. METOCLOPRAMIDE [Concomitant]
     Dates: start: 20100502, end: 20100502
  41. DORFLEX [Concomitant]
     Indication: PAIN PROPHYLAXIS
     Dates: start: 20100103, end: 20100403
  42. PAROXETINE [Concomitant]
     Dates: start: 20100427, end: 20100429
  43. PAROXETINE [Concomitant]
     Dates: start: 20100504, end: 20100507
  44. ONDANSETRON [Concomitant]
     Indication: PROPHYLAXIS OF NAUSEA AND VOMITING
     Dates: start: 20100310, end: 20100403
  45. METOCLOPRAMIDE [Concomitant]
     Dates: start: 20100403, end: 20100406
  46. METOCLOPRAMIDE [Concomitant]
     Dates: start: 20100410, end: 20100412
  47. METOCLOPRAMIDE [Concomitant]
     Dates: start: 20100428, end: 20100428
  48. DIPYRONE TAB [Concomitant]
     Dates: start: 20100410, end: 20100413
  49. IPRATROPIUM BROMIDE [Concomitant]
     Indication: PROPHYLAXIS
     Dates: start: 20100501, end: 20100509
  50. HALOPERIDOL [Concomitant]
     Dates: start: 20100506, end: 20100509
  51. DOMPERIDONE [Concomitant]
     Indication: PROPHYLAXIS
     Dates: start: 20100506, end: 20100509
  52. ROFERON-A [Suspect]
     Indication: RENAL CANCER
     Dosage: DOSE: 9 MU, TEMPORARILY HELD.
     Route: 042
     Dates: start: 20091216, end: 20100101
  53. GLYBURIDE [Concomitant]
     Dates: start: 20100405, end: 20100405
  54. GLYBURIDE [Concomitant]
     Dates: start: 20100414, end: 20100424
  55. DORFLEX [Concomitant]
     Dates: start: 20100414, end: 20100424
  56. BETAHISTINE [Concomitant]
     Dates: start: 20100414, end: 20100424
  57. LEVOTHYROXINE SODIUM [Concomitant]
     Dates: start: 20100427, end: 20100427
  58. LEVOTHYROXINE SODIUM [Concomitant]
     Dates: start: 20100502, end: 20100502
  59. LEVOTHYROXINE SODIUM [Concomitant]
     Dates: start: 20100504
  60. OMEPRAZOLE [Concomitant]
     Dates: start: 20100425, end: 20100425
  61. MAGNESIUM OXIDE [Concomitant]
     Indication: PROPHYLAXIS
     Dates: start: 20100428, end: 20100428
  62. TRAMADOL HCL [Concomitant]
     Indication: PROPHYLAXIS
     Dates: start: 20100425, end: 20100425
  63. DIPYRONE TAB [Concomitant]
     Dates: start: 20100508, end: 20100508
  64. SODIUM CHLORIDE [Concomitant]
     Indication: PROPHYLAXIS
     Dates: start: 20100409, end: 20100412
  65. TRIGLYCERIDES [Concomitant]
     Indication: PROPHYLAXIS
     Dates: start: 20100503, end: 20100510
  66. CLORPROMAZINA [Concomitant]
     Indication: PROPHYLAXIS
     Dates: start: 20100428, end: 20100429
  67. LORAZEPAM [Concomitant]
     Indication: PROPHYLAXIS
     Dates: start: 20100501, end: 20100502
  68. DIMETICONE [Concomitant]
     Indication: PROPHYLAXIS
     Dates: start: 20100501, end: 20100508
  69. SODIUM CHLORIDE [Concomitant]
     Dates: start: 20100425, end: 20100428
  70. ROFERON-A [Suspect]
     Dosage: DOSE REDUCED  DOSE: 6MU SINCE CYCLE 4
     Route: 042
  71. GLYBURIDE [Concomitant]
     Dates: start: 20100429, end: 20100429
  72. BETAHISTINE [Concomitant]
     Indication: DIZZINESS
     Dates: start: 20100324, end: 20100406
  73. BROMAZEPAM [Concomitant]
     Indication: PROPHYLAXIS
     Dates: start: 20100412, end: 20100412
  74. BROMAZEPAM [Concomitant]
     Dates: start: 20100427, end: 20100428
  75. DIPYRONE TAB [Concomitant]
     Indication: PROPHYLAXIS
     Dates: start: 20100403
  76. MINERAL OIL [Concomitant]
     Indication: PROPHYLAXIS
     Dates: start: 20100501, end: 20100503

REACTIONS (4)
  - GASTROINTESTINAL PERFORATION [None]
  - INFECTIOUS PERITONITIS [None]
  - APPENDICITIS [None]
  - INTESTINAL FISTULA [None]
